FAERS Safety Report 8811822 (Version 3)
Quarter: 2013Q1

REPORT INFORMATION
  Report Type: Spontaneous
  Country: US (occurrence: US)
  Receive Date: 20120927
  Receipt Date: 20130111
  Transmission Date: 20140127
  Serious: Yes (Death, Life-Threatening, Disabling)
  Sender: FDA-Public Use
  Company Number: US-GLAXOSMITHKLINE-A0995313A

PATIENT
  Age: 46 Year
  Sex: Male
  Weight: 89.5 kg

DRUGS (16)
  1. VENTOLIN [Suspect]
     Indication: PRODUCT USED FOR UNKNOWN INDICATION
     Route: 065
     Dates: start: 20100614, end: 20121118
  2. ADVAIR [Suspect]
     Indication: PRODUCT USED FOR UNKNOWN INDICATION
     Route: 065
     Dates: start: 20100614, end: 20121118
  3. VICODIN [Suspect]
     Indication: PRODUCT USED FOR UNKNOWN INDICATION
     Route: 048
  4. HYDROCODONE + ACETAMINOPHEN [Suspect]
     Indication: PRODUCT USED FOR UNKNOWN INDICATION
     Route: 065
  5. CARISOPRODOL [Suspect]
     Indication: PRODUCT USED FOR UNKNOWN INDICATION
     Dosage: 350MG UNKNOWN
     Route: 065
  6. TEMAZEPAM [Suspect]
     Indication: PRODUCT USED FOR UNKNOWN INDICATION
     Route: 065
  7. DOXYLAMINE [Concomitant]
  8. MEPROBAMATE [Concomitant]
  9. PROMETHAZINE [Concomitant]
  10. NAPROXEN [Concomitant]
  11. CEPHALEXIN [Concomitant]
  12. DOXYCYCLINE HYCLATE [Concomitant]
  13. GEMFIBROZIL [Concomitant]
  14. IBUPROFEN [Concomitant]
  15. CORTISONE [Concomitant]
  16. ALBUTEROL [Concomitant]

REACTIONS (4)
  - Overdose [Fatal]
  - Arteriosclerosis [Fatal]
  - Dyspnoea [Unknown]
  - Drug administration error [Unknown]
